FAERS Safety Report 24554982 (Version 1)
Quarter: 2024Q4

REPORT INFORMATION
  Report Type: Report from Study
  Country: BE (occurrence: BE)
  Receive Date: 20241028
  Receipt Date: 20241028
  Transmission Date: 20250115
  Serious: Yes (Other)
  Sender: ROCHE
  Company Number: BE-ROCHE-10000112824

PATIENT

DRUGS (6)
  1. ATEZOLIZUMAB [Suspect]
     Active Substance: ATEZOLIZUMAB
     Indication: Neoplasm malignant
     Route: 065
  2. AVELUMAB [Suspect]
     Active Substance: AVELUMAB
     Indication: Neoplasm malignant
     Route: 065
  3. DURVALUMAB [Suspect]
     Active Substance: DURVALUMAB
     Indication: Neoplasm malignant
     Route: 065
  4. PEMBROLIZUMAB [Suspect]
     Active Substance: PEMBROLIZUMAB
     Indication: Neoplasm malignant
     Route: 065
  5. NIVOLUMAB [Suspect]
     Active Substance: NIVOLUMAB
     Indication: Neoplasm malignant
     Route: 065
  6. IPILIMUMAB [Suspect]
     Active Substance: IPILIMUMAB
     Indication: Neoplasm malignant
     Route: 065

REACTIONS (27)
  - Colitis [Unknown]
  - Diarrhoea [Unknown]
  - Lung disorder [Unknown]
  - Hepatitis [Unknown]
  - Dermatitis [Unknown]
  - Tubulointerstitial nephritis [Unknown]
  - Arthritis [Unknown]
  - Thyroid disorder [Unknown]
  - Raynaud^s phenomenon [Unknown]
  - Muscular weakness [Unknown]
  - Myocarditis [Unknown]
  - Myositis [Unknown]
  - Pancreatitis [Unknown]
  - Guillain-Barre syndrome [Unknown]
  - Spondylitis [Unknown]
  - Rash [Unknown]
  - Pyrexia [Unknown]
  - Dyspnoea [Unknown]
  - Cough [Unknown]
  - Abdominal pain [Unknown]
  - Vomiting [Unknown]
  - Nausea [Unknown]
  - Discomfort [Unknown]
  - Dizziness [Unknown]
  - Musculoskeletal pain [Unknown]
  - Acute kidney injury [Unknown]
  - Hepatic function abnormal [Unknown]
